FAERS Safety Report 8798544 (Version 2)
Quarter: 2012Q4

REPORT INFORMATION
  Report Type: Report from Study
  Country: JP (occurrence: JP)
  Receive Date: 20120920
  Receipt Date: 20121023
  Transmission Date: 20130627
  Serious: Yes (Hospitalization, Other)
  Sender: FDA-Public Use
  Company Number: JP-VERTEX PHARMACEUTICAL INC.-2012-021502

PATIENT
  Age: 71 Year
  Sex: Female

DRUGS (10)
  1. VX-950 [Suspect]
     Indication: HEPATITIS C
     Dosage: 1500 mg, qd
     Route: 048
     Dates: start: 20120706, end: 20120914
  2. REBETOL [Suspect]
     Indication: HEPATITIS C
     Dosage: 200 mg, qd
     Route: 048
     Dates: start: 20120705, end: 20121005
  3. PEGINTRON                          /01543001/ [Suspect]
     Indication: HEPATITIS C
     Dosage: 1.5 ?g, UNK
     Route: 058
     Dates: start: 20120705
  4. PEGINTRON                          /01543001/ [Suspect]
     Dosage: 0.8 ?g, UNK
     Route: 058
     Dates: start: 20120824, end: 20121005
  5. GLIMICRON [Concomitant]
     Dosage: 20 mg, qd
     Route: 048
     Dates: start: 20120713
  6. JANUVIA [Concomitant]
     Dosage: 50 mg, qd
     Route: 048
     Dates: start: 20120713
  7. ZYLORIC [Concomitant]
     Dosage: 100 mg, qd
     Route: 048
     Dates: start: 20120713, end: 20120716
  8. NESINA [Concomitant]
     Dosage: 25 mg, qd
     Route: 048
  9. NEORAL [Concomitant]
     Dosage: 10 mg, qd
     Route: 048
  10. FEBURIC [Concomitant]
     Dosage: 20 mg, qd
     Route: 048

REACTIONS (6)
  - Decreased appetite [Not Recovered/Not Resolved]
  - Malaise [Not Recovered/Not Resolved]
  - Malaise [Not Recovered/Not Resolved]
  - Renal impairment [Not Recovered/Not Resolved]
  - Anaemia [Recovered/Resolved]
  - Off label use [Unknown]
